FAERS Safety Report 11082568 (Version 5)
Quarter: 2015Q3

REPORT INFORMATION
  Report Type: Spontaneous
  Country: BE (occurrence: BE)
  Receive Date: 20150501
  Receipt Date: 20150721
  Transmission Date: 20151125
  Serious: Yes (Other)
  Sender: FDA-Public Use
  Company Number: BE-BIOGENIDEC-2015BI053630

PATIENT
  Age: 51 Year
  Sex: Female

DRUGS (18)
  1. RIVOTRIL [Concomitant]
     Active Substance: CLONAZEPAM
  2. REPARIL [Concomitant]
  3. TECFIDERA [Suspect]
     Active Substance: DIMETHYL FUMARATE
     Indication: PRODUCT USED FOR UNKNOWN INDICATION
     Route: 048
     Dates: start: 20150227, end: 20150318
  4. TECFIDERA [Suspect]
     Active Substance: DIMETHYL FUMARATE
     Indication: PRODUCT USED FOR UNKNOWN INDICATION
     Route: 048
     Dates: start: 20150319, end: 20150325
  5. TECFIDERA [Suspect]
     Active Substance: DIMETHYL FUMARATE
     Indication: PRODUCT USED FOR UNKNOWN INDICATION
     Route: 048
     Dates: start: 20150331, end: 20150408
  6. LIORESAL [Concomitant]
     Active Substance: BACLOFEN
  7. ZESTRIL [Concomitant]
     Active Substance: LISINOPRIL
  8. METARELAX [Concomitant]
  9. TECFIDERA [Suspect]
     Active Substance: DIMETHYL FUMARATE
     Indication: PRODUCT USED FOR UNKNOWN INDICATION
     Route: 048
     Dates: start: 20141114, end: 20141210
  10. TECFIDERA [Suspect]
     Active Substance: DIMETHYL FUMARATE
     Indication: PRODUCT USED FOR UNKNOWN INDICATION
     Route: 048
     Dates: start: 20150206, end: 20150226
  11. LIORESAL [Concomitant]
     Active Substance: BACLOFEN
  12. NEURONTIN [Concomitant]
     Active Substance: GABAPENTIN
  13. VITAMIN D [Concomitant]
     Active Substance: CHOLECALCIFEROL
  14. SOLU-MEDROL [Concomitant]
     Active Substance: METHYLPREDNISOLONE SODIUM SUCCINATE
     Dates: start: 20150303, end: 20150307
  15. TECFIDERA [Suspect]
     Active Substance: DIMETHYL FUMARATE
     Indication: PRODUCT USED FOR UNKNOWN INDICATION
     Route: 048
     Dates: start: 20150109, end: 20150205
  16. TECFIDERA [Suspect]
     Active Substance: DIMETHYL FUMARATE
     Indication: PRODUCT USED FOR UNKNOWN INDICATION
     Dates: start: 20141107, end: 20141113
  17. TECFIDERA [Suspect]
     Active Substance: DIMETHYL FUMARATE
     Indication: PRODUCT USED FOR UNKNOWN INDICATION
     Route: 048
     Dates: start: 20141211, end: 20150108
  18. NEURONTIN [Concomitant]
     Active Substance: GABAPENTIN

REACTIONS (12)
  - Intentional product misuse [Unknown]
  - Gamma-glutamyltransferase increased [Unknown]
  - Bilirubin conjugated increased [Unknown]
  - Aspartate aminotransferase increased [Unknown]
  - Prescribed underdose [Unknown]
  - Hepatitis toxic [Recovered/Resolved]
  - Blood bilirubin unconjugated increased [Unknown]
  - Blood bilirubin increased [Unknown]
  - Flushing [Unknown]
  - Alanine aminotransferase increased [Unknown]
  - Eosinophilia [Unknown]
  - Arthralgia [Unknown]

NARRATIVE: CASE EVENT DATE: 20150410
